FAERS Safety Report 13762820 (Version 2)
Quarter: 2017Q3

REPORT INFORMATION
  Report Type: Spontaneous
  Country: JP (occurrence: JP)
  Receive Date: 20170718
  Receipt Date: 20170731
  Transmission Date: 20171127
  Serious: Yes (Death, Other)
  Sender: FDA-Public Use
  Company Number: JP-ELI_LILLY_AND_COMPANY-JP201707000157

PATIENT
  Age: 68 Year
  Sex: Male

DRUGS (8)
  1. ALIMTA [Suspect]
     Active Substance: PEMETREXED DISODIUM
     Indication: LUNG ADENOCARCINOMA
     Dosage: 500 MG/M2, SINGLE
     Route: 041
     Dates: start: 20170621, end: 20170621
  2. CARBOPLATIN. [Suspect]
     Active Substance: CARBOPLATIN
     Indication: LUNG ADENOCARCINOMA
     Dosage: UNK UNK, SINGLE
     Route: 041
     Dates: start: 20170621, end: 20170621
  3. MUCOSTA [Concomitant]
     Active Substance: REBAMIPIDE
  4. ZOPICLONE [Concomitant]
     Active Substance: ZOPICLONE
  5. LOXONIN [Concomitant]
     Active Substance: LOXOPROFEN SODIUM
     Dosage: UNK
  6. FRESMIN S                          /00091803/ [Concomitant]
  7. FOLIC ACID. [Concomitant]
     Active Substance: FOLIC ACID
  8. OXYCONTIN [Concomitant]
     Active Substance: OXYCODONE HYDROCHLORIDE
     Dosage: 10 MG, DAILY

REACTIONS (3)
  - Malignant neoplasm progression [Fatal]
  - Cytopenia [Unknown]
  - Multiple organ dysfunction syndrome [Fatal]

NARRATIVE: CASE EVENT DATE: 20170629
